FAERS Safety Report 7692929-6 (Version None)
Quarter: 2011Q3

REPORT INFORMATION
  Report Type: 
  Country: None (occurrence: None)
  Receive Date: 20110819
  Receipt Date: 20110816
  Transmission Date: 20111222
  Serious: Yes (Other)
  Sender: FDA-Public Use
  Company Number: US-AMGEN-USASP2011036446

PATIENT
  Age: 61 Year
  Sex: Male
  Weight: 100 kg

DRUGS (7)
  1. NPLATE [Suspect]
     Indication: IDIOPATHIC THROMBOCYTOPENIC PURPURA
     Dosage: UNK
     Dates: start: 20110501
  2. TACROLIMUS [Concomitant]
     Indication: LIVER TRANSPLANT
     Dosage: 0.5 MG, BID
     Route: 048
  3. NPLATE [Suspect]
  4. DOXAZOSIN MESYLATE [Concomitant]
     Dosage: 2 MG, UNK
     Route: 048
  5. NADOLOL [Concomitant]
     Dosage: 40 MG, UNK
     Route: 048
  6. NPLATE [Suspect]
  7. PREDNISONE [Concomitant]
     Indication: IDIOPATHIC THROMBOCYTOPENIC PURPURA
     Dosage: 5 MG, UNK
     Route: 048

REACTIONS (2)
  - BLAST CELLS [None]
  - NUCLEATED RED CELLS [None]
